FAERS Safety Report 13494673 (Version 1)
Quarter: 2017Q2

REPORT INFORMATION
  Report Type: Spontaneous
  Country: US (occurrence: US)
  Receive Date: 20170428
  Receipt Date: 20170428
  Transmission Date: 20170830
  Serious: Yes (Other)
  Sender: FDA-Public Use
  Company Number: US-APOTEX-2017AP010870

PATIENT
  Age: 50 Year
  Sex: Female

DRUGS (3)
  1. PAXIL [Suspect]
     Active Substance: PAROXETINE HYDROCHLORIDE
     Indication: HOT FLUSH
     Dosage: 10 MG, UNK
     Route: 065
     Dates: start: 201607
  2. PAXIL [Suspect]
     Active Substance: PAROXETINE HYDROCHLORIDE
     Dosage: 20 MG, UNK
     Route: 065
  3. PAXIL [Suspect]
     Active Substance: PAROXETINE HYDROCHLORIDE
     Dosage: 30 MG, UNK
     Route: 065
     Dates: end: 201612

REACTIONS (13)
  - Blindness unilateral [Not Recovered/Not Resolved]
  - Mydriasis [Unknown]
  - Intraocular pressure increased [Unknown]
  - Visual impairment [Not Recovered/Not Resolved]
  - Dizziness [Unknown]
  - Vitreous floaters [Unknown]
  - Macular hole [Recovered/Resolved]
  - Vitrectomy [Unknown]
  - Off label use [Unknown]
  - Drug ineffective for unapproved indication [Unknown]
  - Metamorphopsia [Unknown]
  - Retinal tear [Unknown]
  - Vision blurred [Unknown]

NARRATIVE: CASE EVENT DATE: 201608
